FAERS Safety Report 12090436 (Version 3)
Quarter: 2016Q2

REPORT INFORMATION
  Report Type: Spontaneous
  Country: GB (occurrence: GB)
  Receive Date: 20160218
  Receipt Date: 20160415
  Transmission Date: 20160815
  Serious: Yes (Other)
  Sender: FDA-Public Use
  Company Number: GB-TEVA-633904ACC

PATIENT
  Age: 50 Year
  Sex: Male

DRUGS (8)
  1. FLUTICASONE [Concomitant]
     Active Substance: FLUTICASONE\FLUTICASONE PROPIONATE
  2. DICLOFENAC [Concomitant]
     Active Substance: DICLOFENAC
  3. PARACETAMOL [Concomitant]
     Active Substance: ACETAMINOPHEN
  4. GAVISCON [Concomitant]
     Active Substance: ALUMINUM HYDROXIDE\MAGNESIUM CARBONATE
     Dosage: PRN
  5. TRAMADOL HYDROCHLORIDE. [Suspect]
     Active Substance: TRAMADOL HYDROCHLORIDE
     Indication: RENAL COLIC
  6. TRAMADOL HYDROCHLORIDE. [Suspect]
     Active Substance: TRAMADOL HYDROCHLORIDE
     Indication: NEPHROLITHIASIS
     Dosage: 150 MILLIGRAM DAILY;
     Route: 048
     Dates: start: 20080305
  7. SALMETEROL? [Concomitant]
  8. SALBUTAMOL [Concomitant]
     Active Substance: ALBUTEROL

REACTIONS (6)
  - Movement disorder [Unknown]
  - Dyskinesia [Unknown]
  - Dysphemia [Unknown]
  - Tremor [Unknown]
  - Abdominal pain [Unknown]
  - Muscle twitching [Unknown]
